FAERS Safety Report 7225553-X (Version None)
Quarter: 2011Q1

REPORT INFORMATION
  Report Type: 
  Country: None (occurrence: None)
  Receive Date: 20110113
  Receipt Date: 20110105
  Transmission Date: 20110831
  Serious: Yes (Other)
  Sender: FDA-Public Use
  Company Number: US-SANOFI-AVENTIS-2011SA001038

PATIENT
  Age: 68 Year
  Sex: Female

DRUGS (7)
  1. LANTUS [Suspect]
     Indication: TYPE 2 DIABETES MELLITUS
     Dates: start: 20100601
  2. OPTICLICK [Suspect]
     Dates: start: 20100601
  3. LANTUS [Suspect]
     Dates: start: 20100601
  4. OPTICLICK [Suspect]
     Dates: start: 20100601
  5. HUMALOG [Suspect]
     Indication: TYPE 2 DIABETES MELLITUS
  6. OPTICLICK [Suspect]
     Indication: TYPE 2 DIABETES MELLITUS
     Dates: start: 20100601
  7. LANTUS [Suspect]
     Dates: start: 20100601

REACTIONS (3)
  - EYE LASER SURGERY [None]
  - VISUAL IMPAIRMENT [None]
  - INTRAOCULAR PRESSURE INCREASED [None]
